FAERS Safety Report 5445028-8 (Version None)
Quarter: 2007Q3

REPORT INFORMATION
  Report Type: 
  Country: None (occurrence: None)
  Receive Date: 20070906
  Receipt Date: 20070904
  Transmission Date: 20080115
  Serious: Yes (Hospitalization)
  Sender: FDA-Public Use
  Company Number: FRWYE920426JUN07

PATIENT
  Age: 41 Year
  Sex: Male

DRUGS (2)
  1. ADVIL LIQUI-GELS [Suspect]
     Indication: TOOTHACHE
     Route: 048
     Dates: start: 20070520, end: 20070520
  2. PREVISCAN [Concomitant]
     Indication: PHLEBITIS
     Dosage: UNKNOWN
     Route: 048
     Dates: start: 20070301, end: 20070501

REACTIONS (3)
  - GASTRIC ULCER HAEMORRHAGE [None]
  - HAEMORRHAGIC ANAEMIA [None]
  - OESOPHAGITIS ULCERATIVE [None]
